FAERS Safety Report 21188270 (Version 3)
Quarter: 2022Q4

REPORT INFORMATION
  Report Type: Report from Study
  Country: KR (occurrence: KR)
  Receive Date: 20220809
  Receipt Date: 20221104
  Transmission Date: 20230113
  Serious: Yes (Hospitalization)
  Sender: FDA-Public Use
  Company Number: KR-JNJFOC-20220756475

PATIENT
  Age: 20 Year
  Sex: Female
  Weight: 95.5 kg

DRUGS (2)
  1. ESKETAMINE [Suspect]
     Active Substance: ESKETAMINE
     Indication: Depression
     Dosage: FIRST DOSE
     Dates: start: 20220720
  2. ESKETAMINE [Suspect]
     Active Substance: ESKETAMINE
     Dosage: 12 TOTAL DOSES (SECOND TO THIRTEENTH DOSES)
     Dates: start: 20220722, end: 20220915

REACTIONS (1)
  - Major depression [Recovered/Resolved]

NARRATIVE: CASE EVENT DATE: 20220727
